FAERS Safety Report 8734813 (Version 8)
Quarter: 2018Q1

REPORT INFORMATION
  Report Type: Spontaneous
  Country: US (occurrence: US)
  Receive Date: 20120821
  Receipt Date: 20180117
  Transmission Date: 20180509
  Serious: Yes (Congenital Anomaly, Other)
  Sender: FDA-Public Use
  Company Number: US-PFIZER INC-2012199790

PATIENT
  Sex: Female
  Weight: 2 kg

DRUGS (3)
  1. RISPERDAL [Suspect]
     Active Substance: RISPERIDONE
     Dosage: UNK
     Route: 064
  2. ZOLOFT [Suspect]
     Active Substance: SERTRALINE HYDROCHLORIDE
     Indication: DEPRESSION
     Dosage: UNK
     Route: 064
     Dates: start: 1994, end: 2006
  3. ZOLOFT [Suspect]
     Active Substance: SERTRALINE HYDROCHLORIDE
     Dosage: 50 MG, UNK
     Route: 064
     Dates: start: 1996

REACTIONS (13)
  - Maternal exposure timing unspecified [Unknown]
  - Cardiac murmur [Unknown]
  - Mitral valve incompetence [Unknown]
  - Left atrial enlargement [Unknown]
  - Pneumonia [Unknown]
  - Right ventricular hypertrophy [Unknown]
  - Functional gastrointestinal disorder [Unknown]
  - Constipation [Unknown]
  - Pulmonary valve stenosis [Unknown]
  - Asthma [Unknown]
  - Malaise [Unknown]
  - Vitamin D deficiency [Unknown]
  - Faecaloma [Unknown]

NARRATIVE: CASE EVENT DATE: 20000728
